FAERS Safety Report 26119128 (Version 1)
Quarter: 2025Q4

REPORT INFORMATION
  Report Type: Spontaneous
  Country: US (occurrence: US)
  Receive Date: 20251204
  Receipt Date: 20251204
  Transmission Date: 20260118
  Serious: Yes (Hospitalization, Other)
  Sender: COLLEGIUM PHARMACEUTICAL
  Company Number: US-COLLEGIUM PHARMACEUTICAL, INC.-20251202805

PATIENT
  Age: 27 Year
  Sex: Female

DRUGS (1)
  1. XTAMPZA ER [Suspect]
     Active Substance: OXYCODONE
     Indication: Product used for unknown indication
     Dosage: UNK, UNKNOWN
     Route: 042

REACTIONS (6)
  - Fall [Unknown]
  - Mobility decreased [Unknown]
  - Pain [Unknown]
  - Suicidal behaviour [Unknown]
  - Intentional product misuse [Unknown]
  - Incorrect route of product administration [Unknown]
